FAERS Safety Report 21656475 (Version 1)
Quarter: 2022Q4

REPORT INFORMATION
  Report Type: Report from Study
  Country: CO (occurrence: CO)
  Receive Date: 20221129
  Receipt Date: 20221129
  Transmission Date: 20230112
  Serious: Yes (Other)
  Sender: FDA-Public Use
  Company Number: CO-BAYER-2022A154394

PATIENT
  Sex: Female

DRUGS (2)
  1. EYLEA [Suspect]
     Active Substance: AFLIBERCEPT
     Indication: Age-related macular degeneration
     Dosage: UNK, BOTH EYES, SOLUTION FOR INJECTION
     Route: 031
     Dates: start: 20220919, end: 20220919
  2. EYLEA [Suspect]
     Active Substance: AFLIBERCEPT
     Dosage: UNK, BOTH EYES, SOLUTION FOR INJECTION
     Route: 031
     Dates: start: 20221021, end: 20221021

REACTIONS (5)
  - Ophthalmoplegia [Not Recovered/Not Resolved]
  - Ocular hyperaemia [Recovered/Resolved]
  - Application site pain [Recovered/Resolved]
  - Ocular hyperaemia [Not Recovered/Not Resolved]
  - Lacrimation increased [Not Recovered/Not Resolved]

NARRATIVE: CASE EVENT DATE: 20221021
